FAERS Safety Report 17033494 (Version 1)
Quarter: 2019Q4

REPORT INFORMATION
  Report Type: Spontaneous
  Country: US (occurrence: US)
  Receive Date: 20191113
  Receipt Date: 20191113
  Transmission Date: 20200122
  Serious: No
  Sender: FDA-Public Use
  Company Number: None

PATIENT
  Age: 67 Year
  Sex: Male
  Weight: 110 kg

DRUGS (9)
  1. HEPARIN SODIUM INJECTION, USP 30,000 [Suspect]
     Active Substance: HEPARIN SODIUM
     Indication: PERCUTANEOUS CORONARY INTERVENTION
     Dosage: ?          QUANTITY:30000 DF DOSAGE FORM;?
     Route: 042
     Dates: start: 20191111, end: 20191111
  2. CLOPIDOGREL [Concomitant]
     Active Substance: CLOPIDOGREL BISULFATE
  3. ALDACTONE [Concomitant]
     Active Substance: SPIRONOLACTONE
  4. ATORVASTATIN [Concomitant]
     Active Substance: ATORVASTATIN
  5. SILDENAFIL. [Concomitant]
     Active Substance: SILDENAFIL
  6. LISINOPRIL. [Concomitant]
     Active Substance: LISINOPRIL
  7. MULTIVITAMIN [Concomitant]
     Active Substance: VITAMINS
  8. FUROSEMIDE. [Concomitant]
     Active Substance: FUROSEMIDE
  9. METOPROLOL. [Concomitant]
     Active Substance: METOPROLOL

REACTIONS (1)
  - Therapeutic product effect decreased [None]

NARRATIVE: CASE EVENT DATE: 20191111
